FAERS Safety Report 9706577 (Version 1)
Quarter: 2013Q4

REPORT INFORMATION
  Report Type: Spontaneous
  Country: US (occurrence: US)
  Receive Date: 20131125
  Receipt Date: 20131125
  Transmission Date: 20140711
  Serious: Yes (Other)
  Sender: FDA-Public Use
  Company Number: US-JNJCP-30000188803

PATIENT
  Sex: Female

DRUGS (6)
  1. NEUTROGENA ULTRA GENTLE SOOTHING LOTION SPF15 [Suspect]
     Indication: PRODUCT USED FOR UNKNOWN INDICATION
     Dosage: MORE THAN EIGHT TIMES A WEEK
     Route: 061
  2. NO DRUG NAME [Concomitant]
  3. NO DRUG NAME [Concomitant]
  4. NO DRUG NAME [Concomitant]
  5. NO DRUG NAME [Concomitant]
  6. NO DRUG NAME [Concomitant]

REACTIONS (2)
  - Application site inflammation [Unknown]
  - Adverse reaction [Unknown]
